FAERS Safety Report 7227369-7 (Version None)
Quarter: 2011Q1

REPORT INFORMATION
  Report Type: 
  Country: None (occurrence: None)
  Receive Date: 20110111
  Receipt Date: 20110111
  Transmission Date: 20110831
  Serious: Yes (Hospitalization)
  Sender: FDA-Public Use
  Company Number: None

PATIENT
  Sex: Female
  Weight: 90.7194 kg

DRUGS (1)
  1. LOVENOX [Suspect]
     Indication: THROMBOSIS
     Dosage: MORNING AND EVENING INJECTIONS TWICE A DAY OTHER
     Route: 050
     Dates: start: 20101129, end: 20101205

REACTIONS (4)
  - ERYTHEMA [None]
  - PAIN [None]
  - SKIN NECROSIS [None]
  - WOUND [None]
